FAERS Safety Report 7289347-1 (Version None)
Quarter: 2011Q1

REPORT INFORMATION
  Report Type: 
  Country: None (occurrence: None)
  Receive Date: 20110211
  Receipt Date: 20110210
  Transmission Date: 20110831
  Serious: Yes (Life-Threatening, Hospitalization)
  Sender: FDA-Public Use
  Company Number: US-AMGEN-USASP2011006251

PATIENT
  Age: 42 Year
  Sex: Female

DRUGS (13)
  1. MINOLOX [Concomitant]
  2. ALBUTEROL [Concomitant]
  3. NPLATE [Suspect]
     Indication: IDIOPATHIC THROMBOCYTOPENIC PURPURA
     Dosage: 3 A?G/KG, UNK
     Dates: start: 20101229, end: 20110112
  4. IMMUNOGLOBULINS [Concomitant]
  5. SENOKOT [Concomitant]
  6. LISINOPRIL [Concomitant]
  7. OXYMETAZOLINE HCL [Concomitant]
  8. ACYCLOVIR [Concomitant]
  9. CEFEPIME [Concomitant]
  10. VANCOMYCIN [Concomitant]
  11. OXYCODONE HCL [Concomitant]
  12. RITUXIMAB [Concomitant]
  13. FAMOTIDINE [Concomitant]

REACTIONS (5)
  - PLEURAL EFFUSION [None]
  - ABDOMINAL HERNIA [None]
  - PULMONARY EMBOLISM [None]
  - LUNG NEOPLASM [None]
  - DEEP VEIN THROMBOSIS [None]
